FAERS Safety Report 5103983-X (Version None)
Quarter: 2006Q3

REPORT INFORMATION
  Report Type: 
  Country: None (occurrence: None)
  Receive Date: 20060911
  Receipt Date: 20060828
  Transmission Date: 20061208
  Serious: Yes (Other)
  Sender: FDA-Public Use
  Company Number: 2006100066

PATIENT
  Age: 78 Year
  Sex: Female
  Weight: 50 kg

DRUGS (5)
  1. LYRICA [Suspect]
     Indication: NEURALGIA
     Dosage: 600 MG (300 MG, 2 IN 1 D), ORAL
     Route: 048
     Dates: start: 20050805, end: 20051030
  2. ALL OTHER THERAPEUTIC PRODUCTS [Concomitant]
  3. PREDNISOLONE [Concomitant]
  4. PANTOZOL (PANTOPRAZOLE SODIUM) [Concomitant]
  5. LANOXIN [Concomitant]

REACTIONS (3)
  - DELIRIUM [None]
  - FALL [None]
  - TONGUE DISORDER [None]
